FAERS Safety Report 5286988-8 (Version None)
Quarter: 2007Q1

REPORT INFORMATION
  Report Type: 
  Country: None (occurrence: None)
  Receive Date: 20070329
  Receipt Date: 20070315
  Transmission Date: 20070707
  Serious: Yes (Other)
  Sender: FDA-Public Use
  Company Number: 2007000292

PATIENT
  Age: 46 Year
  Sex: Female

DRUGS (5)
  1. TARCEVA [Suspect]
     Indication: LUNG NEOPLASM MALIGNANT
     Dosage: 150 MG (QD), ORAL
     Route: 048
     Dates: start: 20061014
  2. LEVOTHYROXINE SODIUM [Suspect]
  3. MORPHINE SULFATE INJ [Concomitant]
  4. OXAZEPAM [Concomitant]
  5. MELODIA (ETHINYL ESTRADIOL W/NORGESTREL)) [Concomitant]

REACTIONS (5)
  - ACNE [None]
  - ASTHENIA [None]
  - DRUG INTERACTION [None]
  - DRY SKIN [None]
  - HYPOTHYROIDISM [None]
